FAERS Safety Report 6439482-2 (Version None)
Quarter: 2009Q4

REPORT INFORMATION
  Report Type: 
  Country: None (occurrence: None)
  Receive Date: 20091113
  Receipt Date: 20091106
  Transmission Date: 20100525
  Serious: Yes (Other)
  Sender: FDA-Public Use
  Company Number: US-JNJFOC-20090806711

PATIENT
  Sex: Male

DRUGS (2)
  1. LEVAQUIN [Suspect]
     Indication: SURGERY
     Route: 048
     Dates: start: 20090601
  2. UNKNOWN MEDICATION [Concomitant]
     Route: 065

REACTIONS (5)
  - JOINT DISLOCATION [None]
  - JOINT LOCK [None]
  - PAIN IN EXTREMITY [None]
  - TENDON RUPTURE [None]
  - TENDONITIS [None]
